FAERS Safety Report 8166003-9 (Version None)
Quarter: 2012Q1

REPORT INFORMATION
  Report Type: 
  Country: None (occurrence: None)
  Receive Date: 20120227
  Receipt Date: 20110303
  Transmission Date: 20120608
  Serious: No
  Sender: FDA-Public Use
  Company Number: -MYLANLABS-2011S1002220

PATIENT
  Age: 14 Year
  Sex: Female
  Weight: 63.5 kg

DRUGS (1)
  1. AMNESTEEM [Suspect]
     Indication: ACNE
     Dates: start: 20101201, end: 20110101

REACTIONS (2)
  - BLOOD CHOLESTEROL INCREASED [None]
  - LIP DRY [None]
